FAERS Safety Report 5834520-X (Version None)
Quarter: 2008Q3

REPORT INFORMATION
  Report Type: 
  Country: None (occurrence: None)
  Receive Date: 20080805
  Receipt Date: 20080728
  Transmission Date: 20090109
  Serious: Yes (Hospitalization, Other)
  Sender: FDA-Public Use
  Company Number: US-ASTRAZENECA-2006UW22940

PATIENT
  Age: 540 Month
  Sex: Female
  Weight: 93.4 kg

DRUGS (5)
  1. SEROQUEL [Suspect]
     Indication: NIGHTMARE
     Dosage: 100-600MG
     Route: 048
     Dates: start: 19980101, end: 20010101
  2. SEROQUEL [Suspect]
     Indication: DEPRESSION
     Dosage: 100-600MG
     Route: 048
     Dates: start: 19980101, end: 20010101
  3. SEROQUEL [Suspect]
     Dosage: 100MG - 600MG
     Route: 048
  4. SEROQUEL [Suspect]
     Dosage: 100MG - 600MG
     Route: 048
  5. RISPERDAL [Concomitant]
     Dates: start: 19970101

REACTIONS (6)
  - CARDIAC FAILURE CONGESTIVE [None]
  - DIABETIC COMA [None]
  - DIABETIC COMPLICATION [None]
  - NEUROPATHY PERIPHERAL [None]
  - PNEUMONIA [None]
  - TYPE 2 DIABETES MELLITUS [None]
